FAERS Safety Report 7153497-0 (Version None)
Quarter: 2010Q4

REPORT INFORMATION
  Report Type: 
  Country: None (occurrence: None)
  Receive Date: 20101213
  Receipt Date: 20101206
  Transmission Date: 20110411
  Serious: Yes (Hospitalization, Other)
  Sender: FDA-Public Use
  Company Number: B0687128A

PATIENT
  Sex: Female

DRUGS (4)
  1. LAMICTAL [Suspect]
     Dosage: 50MG PER DAY
     Route: 065
     Dates: start: 20101101, end: 20101119
  2. FLUDROCORTISONE [Concomitant]
     Indication: ADRENAL INSUFFICIENCY
     Dosage: .2MCG PER DAY
  3. MIDODRINE HYDROCHLORIDE [Concomitant]
     Dosage: 5MG THREE TIMES PER DAY
  4. SPASMONAL [Concomitant]
     Indication: IRRITABLE BOWEL SYNDROME
     Dosage: 1U THREE TIMES PER DAY

REACTIONS (12)
  - ABDOMINAL PAIN [None]
  - BLOOD AMYLASE INCREASED [None]
  - CONJUNCTIVITIS [None]
  - DRUG RASH WITH EOSINOPHILIA AND SYSTEMIC SYMPTOMS [None]
  - HEPATITIS [None]
  - INFLUENZA LIKE ILLNESS [None]
  - MENINGITIS [None]
  - NAUSEA [None]
  - PANCREATITIS [None]
  - PYREXIA [None]
  - RASH [None]
  - TRANSAMINASES INCREASED [None]
